FAERS Safety Report 6180163-0 (Version None)
Quarter: 2009Q2

REPORT INFORMATION
  Report Type: 
  Country: None (occurrence: None)
  Receive Date: 20090505
  Receipt Date: 20080910
  Transmission Date: 20091009
  Serious: Yes (Hospitalization)
  Sender: FDA-Public Use
  Company Number: ES-GENENTECH-282430

PATIENT
  Age: 44 Year
  Sex: Female

DRUGS (3)
  1. TRASTUZUMAB [Suspect]
     Indication: BREAST CANCER
     Dosage: 2 MG/KG, 1/WEEK
     Route: 042
     Dates: start: 20080418, end: 20080707
  2. DOXORUBICIN HCL [Suspect]
     Indication: BREAST CANCER
     Dosage: 35 MG/M2, Q3W
     Route: 042
     Dates: start: 20080418, end: 20080707
  3. CYCLOPHOSPHAMIDE [Suspect]
     Indication: BREAST CANCER
     Dosage: 600 MG/M2, Q3W
     Route: 042

REACTIONS (1)
  - PNEUMOTHORAX [None]
